FAERS Safety Report 8232418-3 (Version None)
Quarter: 2012Q1

REPORT INFORMATION
  Report Type: 
  Country: None (occurrence: None)
  Receive Date: 20120323
  Receipt Date: 20120320
  Transmission Date: 20120608
  Serious: Yes (Other)
  Sender: FDA-Public Use
  Company Number: DE-GILEAD-2012-0052511

PATIENT
  Sex: Female

DRUGS (1)
  1. VISTIDE [Suspect]
     Indication: INFECTION

REACTIONS (3)
  - PERICARDIAL EFFUSION [None]
  - LUNG DISORDER [None]
  - CARDIAC DISORDER [None]
